FAERS Safety Report 17101803 (Version 1)
Quarter: 2019Q4

REPORT INFORMATION
  Report Type: Spontaneous
  Country: US (occurrence: US)
  Receive Date: 20191202
  Receipt Date: 20191202
  Transmission Date: 20200122
  Serious: No
  Sender: FDA-Public Use
  Company Number: US-UPSHER-SMITH LABORATORIES, LLC-2019USL00415

PATIENT
  Sex: Female
  Weight: 53.52 kg

DRUGS (4)
  1. IRON [Concomitant]
     Active Substance: IRON
  2. PROTONIX [Concomitant]
     Active Substance: PANTOPRAZOLE SODIUM
  3. MULTIVITAMIN [Concomitant]
     Active Substance: VITAMINS
  4. MIDODRINE HYDROCHLORIDE. [Suspect]
     Active Substance: MIDODRINE HYDROCHLORIDE
     Indication: HYPOTENSION
     Dosage: 5 MG, 3X/DAY
     Route: 048
     Dates: start: 2017

REACTIONS (5)
  - Head discomfort [Not Recovered/Not Resolved]
  - Vascular injury [Not Recovered/Not Resolved]
  - Paraesthesia [Not Recovered/Not Resolved]
  - Pruritus [Not Recovered/Not Resolved]
  - Soft tissue haemorrhage [Not Recovered/Not Resolved]
